FAERS Safety Report 9493686 (Version 2)
Quarter: 2013Q3

REPORT INFORMATION
  Report Type: Spontaneous
  Country: PE (occurrence: PE)
  Receive Date: 20130902
  Receipt Date: 20130904
  Transmission Date: 20140515
  Serious: Yes (Disabling, Other)
  Sender: FDA-Public Use
  Company Number: PE-JNJFOC-20130815209

PATIENT
  Age: 75 Year
  Sex: Female

DRUGS (5)
  1. XARELTO [Suspect]
     Indication: EMBOLISM VENOUS
     Route: 048
     Dates: start: 2013, end: 2013
  2. XARELTO [Suspect]
     Indication: EMBOLISM VENOUS
     Route: 048
     Dates: start: 2013, end: 2013
  3. XARELTO [Suspect]
     Indication: DEEP VEIN THROMBOSIS
     Route: 048
     Dates: start: 2013, end: 2013
  4. XARELTO [Suspect]
     Indication: DEEP VEIN THROMBOSIS
     Route: 048
     Dates: start: 2013, end: 2013
  5. ENOXAPARIN [Suspect]
     Indication: DEEP VEIN THROMBOSIS
     Route: 065
     Dates: start: 2013, end: 2013

REACTIONS (4)
  - Visual field defect [Recovering/Resolving]
  - Thrombosis [Recovering/Resolving]
  - Cerebrovascular accident [Recovering/Resolving]
  - Atrial fibrillation [Unknown]
